FAERS Safety Report 7907580-X (Version None)
Quarter: 2011Q4

REPORT INFORMATION
  Report Type: 
  Country: None (occurrence: None)
  Receive Date: 20111110
  Receipt Date: 20111102
  Transmission Date: 20120403
  Serious: Yes (Hospitalization, Other)
  Sender: FDA-Public Use
  Company Number: PHEH2006US10883

PATIENT
  Sex: Male

DRUGS (27)
  1. NORVASC [Concomitant]
     Dosage: 10 MG, UNK
  2. HYDROCODONE BITARTRATE AND ACETAMINOPHEN [Concomitant]
  3. CEPHALEXIN [Concomitant]
     Dosage: 500 MG, UNK
  4. AMOXICILLIN AND CLAVULANATE POTASSIUM [Concomitant]
  5. SENNA [Concomitant]
  6. AMLODIPINE [Concomitant]
  7. ANUSOL PLUS [Concomitant]
     Indication: HAEMORRHOIDS
  8. AMPICILLIN [Concomitant]
  9. MARINOL [Concomitant]
  10. TEMSIROLIMUS [Concomitant]
  11. THALIDOMIDE [Concomitant]
  12. ACETAMINOPHEN AND TRAMADOL HCL [Concomitant]
  13. LORTAB [Concomitant]
     Dosage: 5/500, UKN, UNK
  14. DURAGESIC-100 [Concomitant]
  15. LEVAQUIN [Concomitant]
  16. AMBIEN [Concomitant]
  17. METHADONE HCL [Concomitant]
  18. DOCUSATE [Concomitant]
  19. ZOMETA [Suspect]
  20. CIPRO [Concomitant]
  21. MS CONTIN [Concomitant]
  22. ASPIRIN [Concomitant]
  23. ZOLPIDEM [Concomitant]
  24. HYDROCHLOROTHIAZIDE [Concomitant]
  25. BUTALBITAL ACETAMINOPHEN AND CAFFEINE [Concomitant]
  26. POTASSIUM CHLORIDE [Concomitant]
  27. TORADOL [Concomitant]

REACTIONS (39)
  - SEPSIS [None]
  - PYREXIA [None]
  - RECTAL HAEMORRHAGE [None]
  - PAIN IN EXTREMITY [None]
  - INJURY [None]
  - ANAEMIA [None]
  - LYMPHADENOPATHY [None]
  - FLUID RETENTION [None]
  - HYPERTRIGLYCERIDAEMIA [None]
  - RESPIRATORY TRACT INFECTION [None]
  - ANXIETY [None]
  - ORAL INFECTION [None]
  - PURULENT DISCHARGE [None]
  - METASTASES TO LUNG [None]
  - PNEUMONIA [None]
  - METASTASES TO BONE [None]
  - OEDEMA [None]
  - ABDOMINAL PAIN [None]
  - PATHOLOGICAL FRACTURE [None]
  - RESPIRATORY FAILURE [None]
  - DECREASED ACTIVITY [None]
  - CONSTIPATION [None]
  - HAEMOPTYSIS [None]
  - CHEST PAIN [None]
  - OSTEONECROSIS OF JAW [None]
  - SWELLING [None]
  - DYSPNOEA [None]
  - PLEURAL EFFUSION [None]
  - FATIGUE [None]
  - HAEMORRHOIDS [None]
  - RENAL FAILURE CHRONIC [None]
  - PAIN [None]
  - OSTEITIS [None]
  - METASTASES TO CENTRAL NERVOUS SYSTEM [None]
  - ORAL NEOPLASM [None]
  - LYMPHADENOPATHY MEDIASTINAL [None]
  - EXOSTOSIS [None]
  - ATELECTASIS [None]
  - SINUS BRADYCARDIA [None]
